FAERS Safety Report 10562717 (Version 1)
Quarter: 2014Q4

REPORT INFORMATION
  Report Type: Spontaneous
  Country: DK (occurrence: DK)
  Receive Date: 20141104
  Receipt Date: 20141104
  Transmission Date: 20150529
  Serious: Yes (Death, Hospitalization)
  Sender: FDA-Public Use
  Company Number: DK-TEVA-519178ISR

PATIENT
  Age: 27 Year
  Sex: Male
  Weight: 125 kg

DRUGS (1)
  1. QUETIAPINE [Suspect]
     Active Substance: QUETIAPINE
     Indication: ANXIETY DISORDER
     Dosage: INITIAL DOSE NOT STATED LATER RECEIVED 400 MG/DAY
     Route: 065

REACTIONS (4)
  - Diabetic ketoacidosis [Fatal]
  - Hypertriglyceridaemia [Fatal]
  - Multi-organ failure [Fatal]
  - Pancreatitis acute [Fatal]
